FAERS Safety Report 4989839-1 (Version None)
Quarter: 2006Q2

REPORT INFORMATION
  Report Type: 
  Country: None (occurrence: None)
  Receive Date: 20060501
  Receipt Date: 20060427
  Transmission Date: 20061013
  Serious: Yes (Death, Hospitalization)
  Sender: FDA-Public Use
  Company Number: S06-FRA-01366-01

PATIENT
  Age: 75 Year
  Sex: Male

DRUGS (15)
  1. SEROPLEX (ESCITALOPRAM) [Suspect]
     Dosage: 5 MG QD PO
     Route: 048
     Dates: end: 20060222
  2. KARDEGIC (ACETYLSALICYLATE LYSINE) [Suspect]
     Indication: ANGINA PECTORIS
     Dosage: 75 MG QD PO
     Route: 048
     Dates: end: 20060222
  3. PREVISCAN (FLUINDIONE) [Suspect]
     Indication: ATRIAL FIBRILLATION
     Dosage: 20 MG QD PO
     Route: 048
     Dates: start: 20060204, end: 20060222
  4. PLAVIX [Suspect]
     Indication: ANGINA PECTORIS
     Dates: start: 20060203, end: 20060222
  5. METOPROLOL TARTRATE [Concomitant]
  6. DIGOXINE NATIVELLE (DIGOXINE) [Concomitant]
  7. PRAVASTATIN [Concomitant]
  8. OMEPRAZOLE [Concomitant]
  9. IKOREL (NICORANDIL) [Concomitant]
  10. TRIMETAZIDINE HYDROCHLORIDE [Concomitant]
  11. RAMIPRIL [Concomitant]
  12. SMECTA [Concomitant]
  13. ACETAMINOPHEN [Concomitant]
  14. ELUDRIL [Concomitant]
  15. FUNGIZONE [Concomitant]

REACTIONS (8)
  - ABDOMINAL HAEMATOMA [None]
  - ANAEMIA [None]
  - CARDIAC ARREST [None]
  - DRUG INTERACTION [None]
  - HAEMATEMESIS [None]
  - INTERNATIONAL NORMALISED RATIO INCREASED [None]
  - PERITONEAL HAEMORRHAGE [None]
  - SHOCK [None]
